FAERS Safety Report 7982610-8 (Version None)
Quarter: 2011Q4

REPORT INFORMATION
  Report Type: 
  Country: None (occurrence: None)
  Receive Date: 20111215
  Receipt Date: 20111130
  Transmission Date: 20120403
  Serious: Yes (Other)
  Sender: FDA-Public Use
  Company Number: GB-GLAXOSMITHKLINE-B0758151A

PATIENT
  Sex: Male

DRUGS (1)
  1. MALARONE [Suspect]
     Indication: MALARIA PROPHYLAXIS
     Dosage: 1TAB PER DAY
     Route: 048
     Dates: start: 20110923, end: 20111011

REACTIONS (6)
  - ABDOMINAL PAIN UPPER [None]
  - PYREXIA [None]
  - HALLUCINATION [None]
  - ABNORMAL DREAMS [None]
  - DIARRHOEA [None]
  - LETHARGY [None]
